FAERS Safety Report 15169831 (Version 2)
Quarter: 2025Q3

REPORT INFORMATION
  Report Type: Report from Study
  Country: EU (occurrence: EU)
  Receive Date: 20180720
  Receipt Date: 20250708
  Transmission Date: 20251020
  Serious: Yes (Congenital Anomaly, Other)
  Sender: AUROBINDO
  Company Number: EU-AUROBINDO-AUR-APL-2018-036891

PATIENT
  Sex: Male

DRUGS (2)
  1. RAMIPRIL [Suspect]
     Active Substance: RAMIPRIL
     Indication: Hypertension
     Route: 064
  2. L-THYROXINE                        /00068002/ [Concomitant]
     Indication: Product used for unknown indication
     Route: 064

REACTIONS (9)
  - Foetal exposure during pregnancy [Unknown]
  - Patent ductus arteriosus [Unknown]
  - Talipes [Unknown]
  - Thrombocytopenia neonatal [Unknown]
  - Neonatal asphyxia [Unknown]
  - Ventricular septal defect [Unknown]
  - Tricuspid valve incompetence [Unknown]
  - Atrial septal defect [Unknown]
  - Neonatal respiratory distress [Unknown]
